FAERS Safety Report 5778100-3 (Version None)
Quarter: 2008Q2

REPORT INFORMATION
  Report Type: 
  Country: None (occurrence: None)
  Receive Date: 20080618
  Receipt Date: 20080618
  Transmission Date: 20081010
  Serious: No
  Sender: FDA-Public Use
  Company Number: None

PATIENT
  Age: 89 Year
  Sex: Female
  Weight: 56.7 kg

DRUGS (1)
  1. MORPHINE [Suspect]
     Indication: PAIN
     Dosage: 30 MG BID PO
     Route: 048
     Dates: start: 20071220, end: 20080114

REACTIONS (3)
  - AGITATION [None]
  - NERVOUSNESS [None]
  - TREMOR [None]
